FAERS Safety Report 15924931 (Version 2)
Quarter: 2019Q1

REPORT INFORMATION
  Report Type: Spontaneous
  Country: US (occurrence: US)
  Receive Date: 20190205
  Receipt Date: 20190219
  Transmission Date: 20190417
  Serious: No
  Sender: FDA-Public Use
  Company Number: US-ALLERGAN-1837192US

PATIENT
  Age: 39 Year
  Sex: Female
  Weight: 206 kg

DRUGS (1)
  1. BOTOX [Suspect]
     Active Substance: ONABOTULINUMTOXINA
     Indication: MIGRAINE
     Dosage: ACTUAL: LIKELY 155 UNITS, SINGLE
     Route: 030
     Dates: start: 20180522, end: 20180522

REACTIONS (2)
  - Injection site swelling [Not Recovered/Not Resolved]
  - Rosacea [Recovered/Resolved]

NARRATIVE: CASE EVENT DATE: 20180522
